FAERS Safety Report 4902650-2 (Version None)
Quarter: 2006Q1

REPORT INFORMATION
  Report Type: 
  Country: None (occurrence: None)
  Receive Date: 20060207
  Receipt Date: 20060206
  Transmission Date: 20060701
  Serious: Yes (Other)
  Sender: FDA-Public Use
  Company Number: 200610429EU

PATIENT
  Age: 53 Year
  Sex: Female

DRUGS (11)
  1. NICODERM [Suspect]
     Indication: EX-SMOKER
     Dosage: 21MG PER DAY
     Route: 062
     Dates: start: 20030101, end: 20050101
  2. RABEPRAZOLE SODIUM [Concomitant]
     Indication: GASTRIC DISORDER
  3. HYDROCHLOROTHIAZIDE [Concomitant]
     Dates: start: 20030101, end: 20050101
  4. PERINDOPRIL [Concomitant]
     Indication: HYPERTENSION
  5. GLIBENCLAMIDE [Concomitant]
     Indication: DIABETES MELLITUS
  6. FLUOXETINE [Concomitant]
     Indication: NERVOUSNESS
  7. UNKNOWN [Concomitant]
     Indication: CARDIAC DISORDER
  8. ROSIGLITAZONE [Concomitant]
     Dates: start: 20050101
  9. METFORMIN HYDROCHLORIDE [Concomitant]
  10. AMLODIPINE [Concomitant]
  11. ATORVASTATIN CALCIUM [Concomitant]

REACTIONS (3)
  - CEREBROVASCULAR ACCIDENT [None]
  - FACIAL PALSY [None]
  - HEART RATE INCREASED [None]
